FAERS Safety Report 8066357-8 (Version None)
Quarter: 2012Q1

REPORT INFORMATION
  Report Type: 
  Country: None (occurrence: None)
  Receive Date: 20120124
  Receipt Date: 20120116
  Transmission Date: 20120608
  Serious: Yes (Hospitalization, Other)
  Sender: FDA-Public Use
  Company Number: US-BAYER-2010-002685

PATIENT
  Age: 26 Year
  Sex: Female
  Weight: 117.91 kg

DRUGS (7)
  1. CELEXA [Concomitant]
     Indication: ANXIETY
  2. ACTIGALL [Concomitant]
     Dosage: 300 MG, BID
     Route: 048
  3. HYDROCODONE BITARTRATE AND ACETAMINOPHEN [Concomitant]
     Dosage: 5-500 MG
     Route: 048
  4. PRILOSEC [Concomitant]
     Dosage: 20 MG, QD
     Route: 048
  5. YAZ [Suspect]
     Indication: AMENORRHOEA
     Dosage: UNK
     Dates: start: 20080601, end: 20081001
  6. CELEXA [Concomitant]
     Indication: DEPRESSION
     Dosage: 30 MG, QD
     Route: 048
  7. IBUPROFEN [Concomitant]
     Dosage: 800 MG, UNK
     Route: 048

REACTIONS (7)
  - THROMBOSIS [None]
  - INJURY [None]
  - DEEP VEIN THROMBOSIS [None]
  - CEREBROVASCULAR ACCIDENT [None]
  - PAIN [None]
  - PARAESTHESIA [None]
  - POST-TRAUMATIC STRESS DISORDER [None]
